FAERS Safety Report 14523404 (Version 2)
Quarter: 2018Q1

REPORT INFORMATION
  Report Type: Report from Study
  Country: US (occurrence: US)
  Receive Date: 20180212
  Receipt Date: 20180222
  Transmission Date: 20180509
  Serious: No
  Sender: FDA-Public Use
  Company Number: US-ELI_LILLY_AND_COMPANY-US201802003903

PATIENT
  Age: 59 Year
  Sex: Female

DRUGS (4)
  1. DULAGLUTIDE. [Suspect]
     Active Substance: DULAGLUTIDE
     Indication: TYPE 2 DIABETES MELLITUS
     Dosage: 1.5 MG, WEEKLY (1/W)
     Route: 058
     Dates: start: 2017, end: 201712
  2. INSULIN [Concomitant]
     Active Substance: INSULIN NOS
     Indication: TYPE 2 DIABETES MELLITUS
  3. LANTUS [Concomitant]
     Active Substance: INSULIN GLARGINE
     Indication: DIABETES MELLITUS
     Dosage: 33 U, EACH EVENING
     Route: 065
  4. EMPAGLIFLOZIN W/LINAGLIPTIN [Concomitant]
     Indication: TYPE 2 DIABETES MELLITUS
     Dosage: UNK, EACH MORNING
     Route: 065

REACTIONS (8)
  - Thirst [Unknown]
  - Glycosylated haemoglobin increased [Recovering/Resolving]
  - Blood glucose increased [Recovering/Resolving]
  - Fatigue [Unknown]
  - Feeling abnormal [Unknown]
  - Blood glucose increased [Unknown]
  - Asthenia [Unknown]
  - Malaise [Recovering/Resolving]

NARRATIVE: CASE EVENT DATE: 20180101
